FAERS Safety Report 18548723 (Version 2)
Quarter: 2022Q2

REPORT INFORMATION
  Report Type: Other
  Country: US (occurrence: None)
  Receive Date: 20201126
  Receipt Date: 20220401
  Transmission Date: 20220721
  Serious: Yes (Other)
  Sender: FDA-Public Use
  Company Number: US-ROCHE-2034602

PATIENT
  Sex: Female
  Weight: 89.8 kg

DRUGS (22)
  1. CELLCEPT [Suspect]
     Active Substance: MYCOPHENOLATE MOFETIL
     Indication: Autoimmune hepatitis
     Dosage: LAST TREATMENT DATE: //2014
     Route: 048
  2. CELLCEPT [Suspect]
     Active Substance: MYCOPHENOLATE MOFETIL
     Indication: Autoimmune haemolytic anaemia
     Dosage: ONGOING
     Route: 048
     Dates: start: 201210
  3. CELLCEPT [Suspect]
     Active Substance: MYCOPHENOLATE MOFETIL
     Indication: Non-alcoholic fatty liver
  4. ASCORBIC ACID [Concomitant]
     Active Substance: ASCORBIC ACID
     Route: 048
  5. ASPIRIN [Concomitant]
     Active Substance: ASPIRIN
     Route: 048
  6. CHOLECALCIFEROL [Concomitant]
     Active Substance: CHOLECALCIFEROL
     Dosage: 1000 UNIT TABLET, TAKE 1 TABLET BY MOUTH 1 TIME A DAY
     Route: 048
  7. LASIX [Concomitant]
     Active Substance: FUROSEMIDE
     Route: 048
  8. COZAAR [Concomitant]
     Active Substance: LOSARTAN POTASSIUM
     Dosage: TAKE 1 TABLET BY MOUTH DAILY
     Route: 048
  9. CLARITIN [Concomitant]
     Active Substance: LORATADINE
     Dosage: 1 TABLET BY MOUTH 1 TIME EACH DAY
     Route: 048
  10. MAGNESIUM OXIDE [Concomitant]
     Active Substance: MAGNESIUM OXIDE
     Dosage: TAKE 1 TABLET BY MOUTH DAILY
     Route: 048
  11. TOPROL XL [Concomitant]
     Active Substance: METOPROLOL SUCCINATE
     Dosage: TAKE 1 TABLET 50 MG BY MOUTH ONE TIME EACH DAY
     Route: 048
  12. NATURE-THROID [Concomitant]
     Active Substance: THYROID, PORCINE
     Dosage: TAKE 1 TABLET BY MOUTH 1 TIME EACH DAY
     Route: 048
  13. FISH OIL [Concomitant]
     Active Substance: FISH OIL
     Route: 048
  14. POTASSIUM GLUCONATE [Concomitant]
     Active Substance: POTASSIUM GLUCONATE
     Dosage: TAKE 1 TABLET BY MOUTH DAILY
     Route: 048
  15. SENOKOT-S [Concomitant]
     Active Substance: DOCUSATE SODIUM\SENNOSIDES
  16. CINNAMON [Concomitant]
     Active Substance: CINNAMON
     Dosage: TAKE BY MOUTH 1 TIME EACH DAY
     Route: 048
  17. FUROSEMIDE [Concomitant]
     Active Substance: FUROSEMIDE
     Route: 048
  18. LOSARTAN [Concomitant]
     Active Substance: LOSARTAN
     Dosage: TAKE 1 TABLET BY MOUTH DAILY
     Route: 048
  19. LORATADINE [Concomitant]
     Active Substance: LORATADINE
     Dosage: 1 TABLET BY MOUTH 1 TIME EACH DAY
     Route: 048
  20. METOPROLOL SUCCINATE [Concomitant]
     Active Substance: METOPROLOL SUCCINATE
     Dosage: TAKE 1 TABLET 50 MG BY MOUTH ONE TIME EACH DAY
     Route: 048
  21. DOCUSATE SODIUM\SENNOSIDES [Concomitant]
     Active Substance: DOCUSATE SODIUM\SENNOSIDES
     Dosage: TAKE 1 TABLET BY MOUTH IF NEEDED
     Route: 048
  22. ELIQUIS [Concomitant]
     Active Substance: APIXABAN

REACTIONS (2)
  - Thrombosis [Unknown]
  - Off label use [Unknown]
